FAERS Safety Report 16819249 (Version 2)
Quarter: 2019Q3

REPORT INFORMATION
  Report Type: Report from Study
  Country: US (occurrence: US)
  Receive Date: 20190917
  Receipt Date: 20190927
  Transmission Date: 20191005
  Serious: Yes (Death)
  Sender: FDA-Public Use
  Company Number: US-TEVA-2019-US-1108705

PATIENT
  Age: 57 Year
  Sex: Male

DRUGS (3)
  1. GABAPENTIN. [Suspect]
     Active Substance: GABAPENTIN
     Route: 065
  2. AMITRIPTYLINE [Suspect]
     Active Substance: AMITRIPTYLINE
     Route: 065
  3. NORTRIPTYLINE [Suspect]
     Active Substance: NORTRIPTYLINE
     Route: 065

REACTIONS (1)
  - Toxicity to various agents [Fatal]
